FAERS Safety Report 9135198 (Version 1)
Quarter: 2013Q1

REPORT INFORMATION
  Report Type: Spontaneous
  Country: US (occurrence: US)
  Receive Date: 20130304
  Receipt Date: 20130304
  Transmission Date: 20140127
  Serious: Yes (Other)
  Sender: FDA-Public Use
  Company Number: US-ENDO PHARMACEUTICALS INC.-ENDC20120048

PATIENT
  Age: 46 Year
  Sex: Female

DRUGS (3)
  1. ENDOCET [Suspect]
     Indication: PAIN
     Dosage: 60/2600 MG
     Route: 048
     Dates: start: 20120807
  2. ENDOCET [Suspect]
     Dosage: 30/1300 MG
     Route: 048
     Dates: start: 20120807, end: 20120807
  3. PERCOCET [Concomitant]
     Indication: PAIN
     Dosage: 30/1300 MG
     Route: 048
     Dates: end: 201208

REACTIONS (6)
  - Intentional drug misuse [Not Recovered/Not Resolved]
  - Migraine [Not Recovered/Not Resolved]
  - Vision blurred [Not Recovered/Not Resolved]
  - Pruritus [Not Recovered/Not Resolved]
  - Drug effect delayed [Not Recovered/Not Resolved]
  - Drug ineffective [Not Recovered/Not Resolved]
